FAERS Safety Report 4891195-4 (Version None)
Quarter: 2006Q1

REPORT INFORMATION
  Report Type: 
  Country: None (occurrence: None)
  Receive Date: 20060125
  Receipt Date: 20060105
  Transmission Date: 20060701
  Serious: Yes (Death, Hospitalization)
  Sender: FDA-Public Use
  Company Number: FR-GLAXOSMITHKLINE-B0406013A

PATIENT
  Age: 83 Year
  Sex: Female

DRUGS (5)
  1. AUGMENTIN '125' [Suspect]
     Dosage: 3UNIT PER DAY
     Route: 042
     Dates: start: 20051216
  2. KARDEGIC [Suspect]
     Dosage: 75MG PER DAY
     Route: 048
  3. LOVENOX [Suspect]
     Dosage: 40MG PER DAY
     Route: 058
     Dates: start: 20051218, end: 20051219
  4. MOPRAL [Suspect]
     Dosage: 20MG PER DAY
     Route: 048
     Dates: start: 20051218
  5. MODOPAR [Suspect]
     Dosage: 187.5MG PER DAY
     Route: 048
     Dates: start: 20051218

REACTIONS (2)
  - DEATH [None]
  - THROMBOCYTOPENIA [None]
